FAERS Safety Report 5224922-7 (Version None)
Quarter: 2007Q1

REPORT INFORMATION
  Report Type: 
  Country: None (occurrence: None)
  Receive Date: 20070126
  Receipt Date: 20070116
  Transmission Date: 20070707
  Serious: Yes (Disabling)
  Sender: FDA-Public Use
  Company Number: GXKR2007GB00868

PATIENT
  Age: 78 Year
  Sex: Female
  Weight: 50 kg

DRUGS (10)
  1. TRIMETHOPRIM [Suspect]
     Indication: URINARY TRACT INFECTION
     Dosage: 200 MG, BID, ORAL
     Route: 048
     Dates: start: 20060725, end: 20060730
  2. ALENDRONIC ACID (ALENDRONIC ACID) [Concomitant]
  3. AMLODIPINE [Concomitant]
  4. ARTHROTEC [Concomitant]
  5. BENDROFLUMETHIAZIDE (BENDROFLUMETHIAZIDE) [Concomitant]
  6. CALCIUM (CALCIUM) [Concomitant]
  7. GAVISCON [Concomitant]
  8. GLUCOSAMINE (GLUCOSAMINE) [Concomitant]
  9. LEVOTHYROXINE SODIUM [Concomitant]
  10. VITAMIN D [Concomitant]

REACTIONS (3)
  - MOUTH ULCERATION [None]
  - ORAL INTAKE REDUCED [None]
  - PHARYNGEAL ULCERATION [None]
